FAERS Safety Report 9411167 (Version 2)
Quarter: 2013Q3

REPORT INFORMATION
  Report Type: Report from Study
  Country: VE (occurrence: VE)
  Receive Date: 20130721
  Receipt Date: 20130814
  Transmission Date: 20140515
  Serious: Yes (Hospitalization, Other)
  Sender: FDA-Public Use
  Company Number: PHHY2013VE075125

PATIENT
  Age: 73 Year
  Sex: Male

DRUGS (6)
  1. XOLAIR [Suspect]
     Indication: EMPHYSEMA
     Dosage: MONTHLY
     Route: 058
     Dates: start: 2012
  2. XOLAIR [Suspect]
     Indication: OFF LABEL USE
  3. FORADIL [Suspect]
     Indication: EMPHYSEMA
     Dosage: UNK
     Dates: start: 201305
  4. MIFLONIDE [Suspect]
     Indication: EMPHYSEMA
     Dosage: UNK
     Dates: start: 201305
  5. BERODUAL [Concomitant]
     Indication: EMPHYSEMA
     Dosage: UNK
  6. BUDECORT [Concomitant]
     Indication: EMPHYSEMA
     Dosage: UNK

REACTIONS (2)
  - General physical health deterioration [Not Recovered/Not Resolved]
  - Emphysema [Unknown]
